FAERS Safety Report 24126264 (Version 1)
Quarter: 2024Q3

REPORT INFORMATION
  Report Type: Spontaneous
  Country: GR (occurrence: GR)
  Receive Date: 20240723
  Receipt Date: 20240723
  Transmission Date: 20241017
  Serious: Yes (Other)
  Sender: BIOLOGICAL E.
  Company Number: GR-BELUSA-2024BELLIT0085

PATIENT

DRUGS (8)
  1. PHENYLEPHRINE HYDROCHLORIDE [Suspect]
     Active Substance: PHENYLEPHRINE HYDROCHLORIDE
     Indication: Sinus bradycardia
     Dosage: IN CONSECUTIVE BOLUSES OVER A PERIOD OF 30 S
     Route: 065
  2. PHENYLEPHRINE HYDROCHLORIDE [Suspect]
     Active Substance: PHENYLEPHRINE HYDROCHLORIDE
     Indication: Hypotension
  3. EPHEDRINE [Suspect]
     Active Substance: EPHEDRINE
     Indication: Hypotension
     Route: 065
  4. EPHEDRINE [Suspect]
     Active Substance: EPHEDRINE
     Indication: Sinus bradycardia
  5. METFORMIN [Concomitant]
     Active Substance: METFORMIN HYDROCHLORIDE
     Indication: Type 2 diabetes mellitus
  6. LIDOCAINE [Concomitant]
     Active Substance: LIDOCAINE
     Route: 065
  7. ROPIVACAINE [Concomitant]
     Active Substance: ROPIVACAINE
     Indication: Epidural analgesia
     Dosage: 1,9 ML WITH 0,2 ML (10 MCG) OF FENTANYL
     Route: 065
  8. FENTANYL [Concomitant]
     Active Substance: FENTANYL\FENTANYL CITRATE
     Indication: Epidural analgesia
     Dosage: 0,2 ML WITH 1,9 ML OF ROPIVACAINE 0.75%
     Route: 065

REACTIONS (1)
  - Drug ineffective [Unknown]
